FAERS Safety Report 6184513-0 (Version None)
Quarter: 2009Q2

REPORT INFORMATION
  Report Type: 
  Country: None (occurrence: None)
  Receive Date: 20090508
  Receipt Date: 20090430
  Transmission Date: 20091009
  Serious: Yes (Hospitalization)
  Sender: FDA-Public Use
  Company Number: JP-BAYER-200910477BYL

PATIENT
  Age: 69 Year
  Sex: Male
  Weight: 72 kg

DRUGS (20)
  1. NEXAVAR [Suspect]
     Indication: RENAL CELL CARCINOMA STAGE IV
     Dosage: UNIT DOSE: 200 MG
     Route: 048
     Dates: start: 20080507, end: 20080610
  2. NEXAVAR [Suspect]
     Dosage: UNIT DOSE: 200 MG
     Route: 048
     Dates: start: 20080611, end: 20080624
  3. NEXAVAR [Suspect]
     Dosage: UNIT DOSE: 200 MG
     Route: 048
     Dates: start: 20080625
  4. SIGMART [Concomitant]
     Dosage: TOTAL DAILY DOSE: 10 MG  UNIT DOSE: 5 MG
     Route: 048
  5. MUCOSTA [Concomitant]
     Dosage: TOTAL DAILY DOSE: 200 MG  UNIT DOSE: 100 MG
     Route: 048
  6. FRANDOL [Concomitant]
     Dosage: TOTAL DAILY DOSE: 40 MG  UNIT DOSE: 40 MG
     Route: 062
  7. ZYLORIC [Concomitant]
     Dosage: TOTAL DAILY DOSE: 100 MG  UNIT DOSE: 100 MG
     Route: 048
  8. ARICEPT [Concomitant]
     Dosage: TOTAL DAILY DOSE: 5 MG  UNIT DOSE: 5 MG
     Route: 048
  9. WARFARIN SODIUM [Concomitant]
     Dosage: TOTAL DAILY DOSE: 1 MG  UNIT DOSE: 1 MG
     Route: 048
  10. GASMOTIN [Concomitant]
     Dosage: TOTAL DAILY DOSE: 15 MG  UNIT DOSE: 5 MG
     Route: 048
  11. LAC-B [Concomitant]
     Dosage: AFTER BREAKFAST,LUNCH AND DINNER
     Route: 048
  12. SHAKUYAKUKANZOUTOU [Concomitant]
     Dosage: TOTAL DAILY DOSE: 7.5 G  UNIT DOSE: 2.5 G
     Route: 048
  13. SHAKUYAKUKANZOUTOU [Concomitant]
     Dosage: TOTAL DAILY DOSE: 2.5 G  UNIT DOSE: 2.5 G
     Route: 048
  14. GASTER D [Concomitant]
     Dosage: TOTAL DAILY DOSE: 10 MG  UNIT DOSE: 10 MG
     Route: 048
  15. DEPAKENE [Concomitant]
     Dosage: TOTAL DAILY DOSE: 200 MG  UNIT DOSE: 200 MG
     Route: 048
  16. DEPAS [Concomitant]
     Dosage: TOTAL DAILY DOSE: 0.5 MG  UNIT DOSE: 0.5 MG
     Route: 048
  17. PRERAN [Concomitant]
     Dosage: TOTAL DAILY DOSE: 1 MG  UNIT DOSE: 1 MG
     Route: 048
  18. GENTAMICIN [Concomitant]
     Route: 061
  19. RINDERON-DP [Concomitant]
     Route: 061
  20. LOCOID [Concomitant]
     Route: 061

REACTIONS (12)
  - ALOPECIA [None]
  - ANAEMIA [None]
  - BRADYCARDIA [None]
  - DECREASED APPETITE [None]
  - DIARRHOEA [None]
  - HYPERAMYLASAEMIA [None]
  - HYPERLIPASAEMIA [None]
  - HYPERTENSION [None]
  - HYPOTHYROIDISM [None]
  - MALAISE [None]
  - PALMAR-PLANTAR ERYTHRODYSAESTHESIA SYNDROME [None]
  - PLATELET COUNT DECREASED [None]
